FAERS Safety Report 4303210-7 (Version None)
Quarter: 2004Q1

REPORT INFORMATION
  Report Type: 
  Country: None (occurrence: None)
  Receive Date: 20040223
  Receipt Date: 20040211
  Transmission Date: 20041129
  Serious: Yes (Hospitalization)
  Sender: FDA-Public Use
  Company Number: US-JNJFOC-20040202995

PATIENT
  Age: 72 Year
  Sex: Male
  Weight: 93.8946 kg

DRUGS (2)
  1. DITROPAN XL [Suspect]
     Indication: URINARY INCONTINENCE
     Dosage: 5 MG, 1 IN 1 DAY, ORAL
     Route: 048
     Dates: start: 20030207, end: 20040207
  2. OTHER (ALL OTHER THERAPEUTIC PRODUCTS) [Concomitant]

REACTIONS (3)
  - DYSPNOEA [None]
  - LIVER DISORDER [None]
  - MENTAL STATUS CHANGES [None]
